FAERS Safety Report 7647778-1 (Version None)
Quarter: 2011Q3

REPORT INFORMATION
  Report Type: 
  Country: None (occurrence: None)
  Receive Date: 20110726
  Receipt Date: 20110719
  Transmission Date: 20111222
  Serious: Yes (Death)
  Sender: FDA-Public Use
  Company Number: 2010EU001989

PATIENT
  Age: 44 Year
  Sex: Male

DRUGS (3)
  1. TACROLIMUS [Suspect]
     Indication: RENAL TRANSPLANT
     Dosage: NG/ML, /D,
  2. MYCOPHENOLATE MOFETIL [Suspect]
     Indication: RENAL TRANSPLANT
     Dosage: 1G /D,
  3. PREDNISOLONE [Suspect]
     Indication: RENAL TRANSPLANT
     Dosage: 2.5 MG /D,

REACTIONS (11)
  - SHOCK HAEMORRHAGIC [None]
  - DYSAESTHESIA [None]
  - INCONTINENCE [None]
  - DEMYELINATING POLYNEUROPATHY [None]
  - MUSCLE ATROPHY [None]
  - EPSTEIN-BARR VIRUS TEST POSITIVE [None]
  - OESOPHAGEAL VARICES HAEMORRHAGE [None]
  - HEPATITIS E [None]
  - HEPATIC CIRRHOSIS [None]
  - ATAXIA [None]
  - PYRAMIDAL TRACT SYNDROME [None]
